FAERS Safety Report 16724730 (Version 4)
Quarter: 2019Q4

REPORT INFORMATION
  Report Type: Spontaneous
  Country: US (occurrence: US)
  Receive Date: 20190821
  Receipt Date: 20191003
  Transmission Date: 20200122
  Serious: No
  Sender: FDA-Public Use
  Company Number: US-PFIZER INC-2019354847

PATIENT
  Age: 84 Year
  Sex: Female
  Weight: 73 kg

DRUGS (1)
  1. PREMARIN [Suspect]
     Active Substance: ESTROGENS, CONJUGATED
     Dosage: UNK UNK, DAILY (0.3 DAILY)

REACTIONS (6)
  - Hyperhidrosis [Unknown]
  - Insomnia [Unknown]
  - Headache [Unknown]
  - Hot flush [Unknown]
  - Body height decreased [Unknown]
  - Malaise [Unknown]
